FAERS Safety Report 4765410-1 (Version None)
Quarter: 2005Q3

REPORT INFORMATION
  Report Type: 
  Country: None (occurrence: None)
  Receive Date: 20050908
  Receipt Date: 20050908
  Transmission Date: 20060218
  Serious: Yes (Other)
  Sender: FDA-Public Use
  Company Number: None

PATIENT
  Sex: Female
  Weight: 90.7194 kg

DRUGS (2)
  1. OXYCODONE (GENERIC) [Suspect]
     Indication: CERVICOBRACHIAL SYNDROME
     Dosage: 80 MG TID PO
     Route: 048
     Dates: start: 20050301, end: 20050501
  2. OXYCODONE (GENERIC) [Suspect]
     Indication: LUMBAR RADICULOPATHY
     Dosage: 80 MG TID PO
     Route: 048
     Dates: start: 20050301, end: 20050501

REACTIONS (2)
  - INADEQUATE ANALGESIA [None]
  - THERAPEUTIC RESPONSE UNEXPECTED WITH DRUG SUBSTITUTION [None]
